FAERS Safety Report 4935058-4 (Version None)
Quarter: 2006Q1

REPORT INFORMATION
  Report Type: 
  Country: None (occurrence: None)
  Receive Date: 20060306
  Receipt Date: 20060306
  Transmission Date: 20060701
  Serious: Yes (Other)
  Sender: FDA-Public Use
  Company Number: None

PATIENT
  Age: 45 Year
  Sex: Male

DRUGS (2)
  1. OXYCONTIN [Suspect]
     Indication: NEUROPATHY
     Dosage: 40 MG TID
     Dates: start: 20050101
  2. OXYCONTIN [Suspect]
     Indication: UNEVALUABLE EVENT
     Dosage: 40 MG TID
     Dates: start: 20050101

REACTIONS (3)
  - DRUG INEFFECTIVE [None]
  - NAUSEA [None]
  - PHARMACEUTICAL PRODUCT COMPLAINT [None]
